FAERS Safety Report 17197436 (Version 2)
Quarter: 2021Q3

REPORT INFORMATION
  Report Type: Report from Study
  Country: GR (occurrence: GR)
  Receive Date: 20191224
  Receipt Date: 20210715
  Transmission Date: 20211014
  Serious: Yes (Hospitalization)
  Sender: FDA-Public Use
  Company Number: PHHO2019GR009654

PATIENT
  Age: 61 Year
  Sex: Female
  Weight: 57 kg

DRUGS (9)
  1. AVELOX [Concomitant]
     Active Substance: MOXIFLOXACIN HYDROCHLORIDE
     Indication: BRONCHITIS
     Dosage: UNK
     Route: 065
     Dates: start: 20190926, end: 20190926
  2. AVELOX [Concomitant]
     Active Substance: MOXIFLOXACIN HYDROCHLORIDE
     Dosage: UNK
     Route: 065
     Dates: start: 20190926, end: 20191001
  3. PULMICORT TURBUHALER [Concomitant]
     Active Substance: BUDESONIDE
     Indication: BRONCHITIS
     Dosage: UNK
     Route: 065
     Dates: start: 20190926, end: 20190926
  4. CANAKINUMAB. [Suspect]
     Active Substance: CANAKINUMAB
     Indication: NON-SMALL CELL LUNG CANCER
     Dosage: 1 DF, Q3W
     Route: 058
     Dates: start: 20190724, end: 20190904
  5. ULTIBRO BREEZHALER [Concomitant]
     Active Substance: GLYCOPYRRONIUM\INDACATEROL
     Indication: CHRONIC OBSTRUCTIVE PULMONARY DISEASE
     Dosage: UNK
     Route: 065
     Dates: start: 20160101, end: 20190926
  6. CANAKINUMAB. [Suspect]
     Active Substance: CANAKINUMAB
     Dosage: 200 DF, Q3W
     Route: 058
     Dates: start: 20191015
  7. AVELOX [Concomitant]
     Active Substance: MOXIFLOXACIN HYDROCHLORIDE
     Dosage: UNK
     Route: 065
     Dates: start: 20190927, end: 20191001
  8. NOROCIN [Concomitant]
     Active Substance: NORFLOXACIN
     Indication: CYSTITIS
     Dosage: 400 MG, BID
     Route: 065
     Dates: start: 20191001, end: 20191007
  9. MOXIFLOXACIN. [Concomitant]
     Active Substance: MOXIFLOXACIN
     Indication: BRONCHITIS
     Dosage: 400 MG, QD
     Route: 065
     Dates: start: 20190926, end: 20191001

REACTIONS (2)
  - Chronic obstructive pulmonary disease [Recovered/Resolved]
  - Chronic obstructive pulmonary disease [Recovered/Resolved with Sequelae]

NARRATIVE: CASE EVENT DATE: 20190926
